FAERS Safety Report 8261335-8 (Version None)
Quarter: 2012Q1

REPORT INFORMATION
  Report Type: 
  Country: None (occurrence: None)
  Receive Date: 20120327
  Receipt Date: 20100219
  Transmission Date: 20120608
  Serious: Yes (Hospitalization, Other)
  Sender: FDA-Public Use
  Company Number: PHEH2010US02632

PATIENT
  Age: 63 Year
  Sex: Male
  Weight: 82.5 kg

DRUGS (7)
  1. GLEEVEC [Suspect]
     Indication: GASTROINTESTINAL STROMAL TUMOUR
     Dosage: 400 MG, QD, ORAL
     Route: 048
     Dates: start: 20090928
  2. LEVOTHYROXINE SODIUM [Concomitant]
  3. KLONOPIN [Concomitant]
  4. HYDROCHLOROTHIAZIDE [Concomitant]
  5. VERAPAMIL [Concomitant]
  6. ZOCOR [Concomitant]
  7. FLOMAX [Concomitant]

REACTIONS (7)
  - PALPITATIONS [None]
  - TACHYCARDIA [None]
  - HAEMOGLOBIN DECREASED [None]
  - FULL BLOOD COUNT DECREASED [None]
  - DYSPNOEA [None]
  - DIZZINESS [None]
  - ARTHRALGIA [None]
